FAERS Safety Report 22099001 (Version 1)
Quarter: 2023Q1

REPORT INFORMATION
  Report Type: Report from Study
  Country: BE (occurrence: BE)
  Receive Date: 20230315
  Receipt Date: 20230315
  Transmission Date: 20230417
  Serious: Yes (Hospitalization)
  Sender: FDA-Public Use
  Company Number: BE-AMGEN-BELNI2023008030

PATIENT
  Age: 15 Year
  Sex: Male

DRUGS (11)
  1. CINACALCET HYDROCHLORIDE [Suspect]
     Active Substance: CINACALCET HYDROCHLORIDE
     Indication: Hyperparathyroidism secondary
     Dosage: 25 MILLIGRAM
     Route: 048
     Dates: start: 20220624
  2. ARANESP [Concomitant]
     Active Substance: DARBEPOETIN ALFA
     Dosage: 50 MICROGRAM
     Route: 058
     Dates: start: 20220730
  3. SILVER NITRATE [Concomitant]
     Active Substance: SILVER NITRATE
     Dosage: 1 UNK
     Route: 061
     Dates: start: 20221005
  4. IRON [Concomitant]
     Active Substance: IRON
     Dosage: 1 UNK
     Route: 048
     Dates: start: 20210809
  5. CHOLECALCIFEROL [Concomitant]
     Active Substance: CHOLECALCIFEROL
     Dosage: 10 GTT DROPS
     Route: 048
     Dates: start: 20210811, end: 20221126
  6. CALCIUM CARBONATE [Concomitant]
     Active Substance: CALCIUM CARBONATE
     Dosage: 1000 MILLIGRAM
     Route: 048
     Dates: start: 20220730, end: 20230127
  7. BACTROBAN [Concomitant]
     Active Substance: MUPIROCIN\MUPIROCIN CALCIUM
     Dosage: 1 UNK
     Route: 061
     Dates: start: 20220729
  8. TACROLIMUS [Concomitant]
     Active Substance: TACROLIMUS
     Dosage: 0.5-1 MILLIGRAM
     Route: 048
     Dates: start: 20210809
  9. AMLODIPINE BESYLATE [Concomitant]
     Active Substance: AMLODIPINE BESYLATE
     Dosage: 5 MILLIGRAM
     Route: 048
     Dates: start: 20220702
  10. ALFACALCIDOL [Concomitant]
     Active Substance: ALFACALCIDOL
     Dosage: 0.25 MICROGRAM
     Route: 048
     Dates: start: 20211108, end: 20230127
  11. SODIUM BICARBONATE [Concomitant]
     Active Substance: SODIUM BICARBONATE
     Dosage: 1000 MILLIGRAM
     Route: 048
     Dates: start: 20220528

REACTIONS (3)
  - Hyperparathyroidism secondary [Not Recovered/Not Resolved]
  - Gastroenteritis [Recovered/Resolved]
  - Hypocalcaemia [Not Recovered/Not Resolved]

NARRATIVE: CASE EVENT DATE: 20221226
